FAERS Safety Report 18537957 (Version 4)
Quarter: 2021Q2

REPORT INFORMATION
  Report Type: Report from Study
  Country: BR (occurrence: BR)
  Receive Date: 20201123
  Receipt Date: 20210420
  Transmission Date: 20210717
  Serious: Yes (Life-Threatening, Hospitalization, Other)
  Sender: FDA-Public Use
  Company Number: BR-GILEAD-2020-0489864

PATIENT
  Age: 67 Year
  Sex: Female
  Weight: 85 kg

DRUGS (127)
  1. MEROPENEM. [Concomitant]
     Active Substance: MEROPENEM
     Dosage: 2 G
     Dates: start: 20200820, end: 20200820
  2. VANCOMYCIN [Concomitant]
     Active Substance: VANCOMYCIN
     Dosage: 500 MG
     Dates: start: 20200828, end: 20200828
  3. DEXAMETHASONE. [Concomitant]
     Active Substance: DEXAMETHASONE
     Indication: COVID-19
     Route: 065
     Dates: start: 20200727, end: 20200727
  4. EPINEPHRINE. [Concomitant]
     Active Substance: EPINEPHRINE
     Indication: PNEUMONIA BACTERIAL
     Dosage: 10 MG
     Route: 065
     Dates: start: 20200805, end: 20200822
  5. CLONAZEPAM. [Concomitant]
     Active Substance: CLONAZEPAM
     Indication: INSOMNIA
     Dosage: .5 MG
     Route: 065
     Dates: start: 20200728, end: 20200731
  6. PROPOFOL. [Concomitant]
     Active Substance: PROPOFOL
     Dosage: 50 ML
     Route: 065
     Dates: start: 20200823, end: 20200823
  7. FENTANYL. [Concomitant]
     Active Substance: FENTANYL
     Dosage: 50 UG
     Route: 065
     Dates: start: 20200831, end: 20200908
  8. MIDAZOLAM. [Concomitant]
     Active Substance: MIDAZOLAM
     Indication: SEDATION
     Dosage: 250 MG
     Route: 065
     Dates: start: 20200807, end: 20200819
  9. FLEET ENEMA [Concomitant]
     Active Substance: SODIUM PHOSPHATE, DIBASIC\SODIUM PHOSPHATE, MONOBASIC
     Dosage: 1 UNIT
     Route: 065
     Dates: start: 20200814, end: 20200814
  10. BISACODYL. [Concomitant]
     Active Substance: BISACODYL
     Route: 065
     Dates: start: 20200814, end: 20200814
  11. NPH INSULIN [Concomitant]
     Active Substance: INSULIN BEEF
     Indication: HYPERGLYCAEMIA
     Dosage: 5 IU
     Route: 065
     Dates: start: 20200813, end: 20200813
  12. INSULIN [Concomitant]
     Active Substance: INSULIN NOS
     Dosage: 4 UNIT
     Dates: start: 20200808, end: 20200808
  13. INSULIN [Concomitant]
     Active Substance: INSULIN NOS
     Dosage: 4 UNIT
     Dates: start: 20200907, end: 20200907
  14. LACTULONA [Concomitant]
     Indication: CONSTIPATION
     Dates: start: 20200814, end: 20200814
  15. NORADRENALINE [NOREPINEPHRINE] [Concomitant]
     Active Substance: NOREPINEPHRINE
     Dosage: 32 ML
     Dates: start: 20200911, end: 20200911
  16. MEROPENEM. [Concomitant]
     Active Substance: MEROPENEM
     Dosage: 1 G
     Dates: start: 20200821, end: 20200824
  17. VANCOMYCIN [Concomitant]
     Active Substance: VANCOMYCIN
     Dosage: 500 MG
     Dates: start: 20200820, end: 20200821
  18. CLARITHROMYCIN. [Concomitant]
     Active Substance: CLARITHROMYCIN
     Indication: COVID-19 PNEUMONIA
     Dosage: ONGOING
     Dates: start: 20200729, end: 20200803
  19. POLYMYXIN B. [Concomitant]
     Active Substance: POLYMYXIN B
     Indication: PNEUMONIA BACTERIAL
     Dates: start: 20200812
  20. MIDAZOLAM. [Concomitant]
     Active Substance: MIDAZOLAM
     Dosage: 250 MG
     Route: 065
     Dates: start: 20200824, end: 20200829
  21. HYDROCORTISONE. [Concomitant]
     Active Substance: HYDROCORTISONE
     Dosage: 200 MG
     Route: 065
     Dates: start: 20200902, end: 20200911
  22. SUXAMETHONIUM [Concomitant]
     Active Substance: SUCCINYLCHOLINE
     Indication: SEDATION
     Dosage: 100 MG
     Route: 065
     Dates: start: 20200803, end: 20200803
  23. ROCURONIUM [Concomitant]
     Active Substance: ROCURONIUM BROMIDE
     Dosage: 50 MG
     Route: 065
     Dates: start: 20200819, end: 20200819
  24. INSULIN [Concomitant]
     Active Substance: INSULIN NOS
     Dosage: 6 UNIT
     Dates: start: 20200909, end: 20200909
  25. POTASSIUM CHLORIDE. [Concomitant]
     Active Substance: POTASSIUM CHLORIDE
     Dates: start: 20200904, end: 20200904
  26. PROMETHAZINE [Concomitant]
     Active Substance: PROMETHAZINE HYDROCHLORIDE
     Indication: INSOMNIA
     Dates: start: 20200731, end: 20200731
  27. LEVOFLOXACIN. [Concomitant]
     Active Substance: LEVOFLOXACIN
     Dates: start: 20200901, end: 20200901
  28. REMDESIVIR. [Suspect]
     Active Substance: REMDESIVIR
     Indication: COVID-19 PNEUMONIA
     Dosage: DATE OF MOST RECENT DOSE OF REMDESIVIR PRIOR TO EVENT ONSET: 06?AUG?2020 AT 14:30 HOURS
     Route: 042
     Dates: start: 20200731
  29. VANCOMYCIN [Concomitant]
     Active Substance: VANCOMYCIN
     Dosage: 2 G
     Dates: start: 20200804, end: 20200804
  30. VANCOMYCIN [Concomitant]
     Active Substance: VANCOMYCIN
     Dosage: 1 G
     Dates: start: 20200819, end: 20200819
  31. ENOXAPARIN [Concomitant]
     Active Substance: ENOXAPARIN
     Route: 065
     Dates: start: 20200728, end: 20200729
  32. LEVOTHYROXINE. [Concomitant]
     Active Substance: LEVOTHYROXINE
     Dates: start: 20200728, end: 20200809
  33. CEFTRIAXONE. [Concomitant]
     Active Substance: CEFTRIAXONE
     Dosage: 2 G
     Dates: start: 20200902, end: 20200904
  34. PROPOFOL. [Concomitant]
     Active Substance: PROPOFOL
     Indication: SEDATION
     Dosage: 5 AMPULE
     Route: 065
     Dates: start: 20200805, end: 20200815
  35. PROPOFOL. [Concomitant]
     Active Substance: PROPOFOL
     Dosage: 5 AMPULE
     Route: 065
     Dates: start: 20200803, end: 20200803
  36. MIDAZOLAM. [Concomitant]
     Active Substance: MIDAZOLAM
     Dosage: 250 MG
     Route: 065
     Dates: start: 20200803, end: 20200803
  37. MIDAZOLAM. [Concomitant]
     Active Substance: MIDAZOLAM
     Dosage: 500 MG
     Route: 065
     Dates: start: 20200830, end: 20200903
  38. PREDNISONE. [Concomitant]
     Active Substance: PREDNISONE
     Indication: COVID-19
     Dosage: 30 MG
     Route: 065
     Dates: start: 20200811, end: 20200811
  39. HYDROCORTISONE. [Concomitant]
     Active Substance: HYDROCORTISONE
     Indication: COVID-19
     Dosage: 50 MG
     Route: 065
     Dates: start: 20200814, end: 20200820
  40. HYDROCORTISONE. [Concomitant]
     Active Substance: HYDROCORTISONE
     Dosage: 100 MG
     Route: 065
     Dates: start: 20200820, end: 20200823
  41. CEFTAZIDIME. [Concomitant]
     Active Substance: CEFTAZIDIME
     Dosage: 1 G
     Route: 065
     Dates: start: 20200905, end: 20200913
  42. ROCURONIUM [Concomitant]
     Active Substance: ROCURONIUM BROMIDE
     Indication: SEDATION
     Dosage: 25 ML
     Route: 065
     Dates: start: 20200805, end: 20200805
  43. ROCURONIUM [Concomitant]
     Active Substance: ROCURONIUM BROMIDE
     Dosage: 25 ML
     Route: 065
     Dates: start: 20200809, end: 20200809
  44. ROCURONIUM [Concomitant]
     Active Substance: ROCURONIUM BROMIDE
     Dosage: 5 AMPULE
     Route: 065
     Dates: start: 20200811, end: 20200812
  45. SODIUM BICARBONATE. [Concomitant]
     Active Substance: SODIUM BICARBONATE
     Dosage: 100 ML
     Dates: start: 20200815, end: 20200815
  46. INSULIN [Concomitant]
     Active Substance: INSULIN NOS
     Indication: HYPERGLYCAEMIA
     Dosage: 4 UNIT
     Dates: start: 20200805, end: 20200805
  47. POTASSIUM PHOSPHATES [Concomitant]
     Active Substance: POTASSIUM PHOSPHATE, DIBASIC\POTASSIUM PHOSPHATE, MONOBASIC
  48. PLACEBO [Suspect]
     Active Substance: UNSPECIFIED INGREDIENT
     Dosage: ON 31/JUL/2020, AT 17:58, SHE HAD HER MOST RECENT DOSE OF BLINDED TOCILIZUMAB PRIOR TO AE/SAE.
     Route: 042
     Dates: start: 20200731
  49. MEROPENEM. [Concomitant]
     Active Substance: MEROPENEM
     Indication: PNEUMONIA BACTERIAL
     Dosage: 500 MG
     Dates: start: 20200804, end: 20200814
  50. VANCOMYCIN [Concomitant]
     Active Substance: VANCOMYCIN
     Indication: PNEUMONIA BACTERIAL
     Dates: start: 20200804, end: 20200811
  51. DEXAMETHASONE. [Concomitant]
     Active Substance: DEXAMETHASONE
     Dosage: 4 MG
     Route: 065
     Dates: start: 20200824, end: 20200830
  52. POLYMYXIN B. [Concomitant]
     Active Substance: POLYMYXIN B
     Dosage: 50 MG
     Dates: start: 20200828, end: 20200906
  53. PREDNISONE. [Concomitant]
     Active Substance: PREDNISONE
     Indication: COVID-19
     Dosage: 25 MG
     Route: 045
     Dates: start: 20200812, end: 20200814
  54. HYDROCORTISONE. [Concomitant]
     Active Substance: HYDROCORTISONE
     Dosage: 500 MG
     Route: 065
     Dates: start: 20200901, end: 20200901
  55. BISACODYL. [Concomitant]
     Active Substance: BISACODYL
     Indication: CONSTIPATION
     Route: 065
     Dates: start: 20200807, end: 20200807
  56. RED BLOOD CELLS, CONCENTRATED [Concomitant]
     Active Substance: HUMAN RED BLOOD CELL
  57. INSULIN [Concomitant]
     Active Substance: INSULIN NOS
     Dosage: 2 UNIT
     Dates: start: 20200808, end: 20200808
  58. INSULIN [Concomitant]
     Active Substance: INSULIN NOS
     Dosage: 3 UNIT
     Dates: start: 20200909, end: 20200909
  59. INSULIN [Concomitant]
     Active Substance: INSULIN NOS
     Dosage: 6 UNIT
     Dates: start: 20200806, end: 20200806
  60. DIPYRONE [Concomitant]
     Active Substance: DIPYRONE
     Indication: PULMONARY SEPSIS
     Dosage: 1 AMPOULE
     Dates: start: 20200823, end: 20200824
  61. PLACEBO [Suspect]
     Active Substance: UNSPECIFIED INGREDIENT
     Indication: COVID-19 PNEUMONIA
     Dosage: ON 31/JUL/2020, AT 17:58, SHE HAD HER MOST RECENT DOSE OF BLINDED TOCILIZUMAB PRIOR TO AE/SAE.
     Route: 042
     Dates: start: 20200731
  62. MEROPENEM. [Concomitant]
     Active Substance: MEROPENEM
     Indication: SEPSIS
     Dosage: 1 G
     Dates: start: 20200828, end: 20200902
  63. MEROPENEM. [Concomitant]
     Active Substance: MEROPENEM
     Dosage: 500 MG
     Dates: start: 20200821, end: 20200821
  64. VANCOMYCIN [Concomitant]
     Active Substance: VANCOMYCIN
     Dosage: 500 MG
     Dates: start: 20200824, end: 20200825
  65. DEXAMETHASONE. [Concomitant]
     Active Substance: DEXAMETHASONE
     Dosage: 6 MG
     Route: 065
     Dates: start: 20200728, end: 20200809
  66. POLYMYXIN B. [Concomitant]
     Active Substance: POLYMYXIN B
     Dosage: 50 MG
     Dates: start: 20200811, end: 20200824
  67. LEVOFLOXACINO [LEVOFLOXACIN] [Concomitant]
     Active Substance: LEVOFLOXACIN
     Indication: PNEUMONIA BACTERIAL
     Dosage: 500 G
     Dates: start: 20200812
  68. CLONAZEPAM. [Concomitant]
     Active Substance: CLONAZEPAM
     Dosage: ONGOING
     Route: 065
     Dates: start: 20200802, end: 20200803
  69. PROPOFOL. [Concomitant]
     Active Substance: PROPOFOL
     Dosage: 50 ML
     Route: 065
     Dates: start: 20200830, end: 20200903
  70. FENTANYL. [Concomitant]
     Active Substance: FENTANYL
     Indication: SEDATION
     Dosage: 5 AMPULE
     Route: 065
     Dates: start: 20200805, end: 20200821
  71. FENTANYL. [Concomitant]
     Active Substance: FENTANYL
     Dosage: 50 UG
     Route: 065
     Dates: start: 20200824, end: 20200829
  72. HEPARIN SODIUM. [Concomitant]
     Active Substance: HEPARIN SODIUM
  73. HYDROCORTISONE. [Concomitant]
     Active Substance: HYDROCORTISONE
     Dosage: 200 MG
     Route: 065
     Dates: start: 20200731, end: 20200731
  74. CEFTAZIDIME. [Concomitant]
     Active Substance: CEFTAZIDIME
     Dosage: 1 MG
     Dates: start: 20200902, end: 20200902
  75. FLEET ENEMA [Concomitant]
     Active Substance: SODIUM PHOSPHATE, DIBASIC\SODIUM PHOSPHATE, MONOBASIC
     Dosage: 1 UNIT
     Route: 065
     Dates: start: 20200821, end: 20200821
  76. SODIUM HEPARIN [Concomitant]
     Active Substance: HEPARIN SODIUM
     Indication: COVID-19
     Route: 065
     Dates: start: 20200806, end: 20200823
  77. SODIUM BICARBONATE. [Concomitant]
     Active Substance: SODIUM BICARBONATE
     Indication: RENAL FAILURE
     Dosage: 70 ML
     Dates: start: 20200902, end: 20200904
  78. INSULIN [Concomitant]
     Active Substance: INSULIN NOS
     Dosage: 1 UNIT
     Dates: start: 20200814, end: 20200814
  79. POTASSIUM CHLORIDE. [Concomitant]
     Active Substance: POTASSIUM CHLORIDE
     Indication: HYPOKALAEMIA
     Dosage: 2 AMPULE
     Dates: start: 20200823, end: 20200823
  80. ONDANSETRON [Concomitant]
     Active Substance: ONDANSETRON
     Dates: start: 20200831, end: 20200901
  81. ADRENALINE [EPINEPHRINE] [Concomitant]
     Active Substance: EPINEPHRINE
     Indication: HYPOTENSION
     Dates: start: 20200803, end: 20200803
  82. CONCENTRATED RED CELLS [Concomitant]
     Active Substance: HUMAN RED BLOOD CELL
     Indication: ANAEMIA
     Dosage: 1 U
     Dates: start: 20200818, end: 20200818
  83. NORADRENALINE [NOREPINEPHRINE] [Concomitant]
     Active Substance: NOREPINEPHRINE
     Dosage: 32 ML
     Dates: start: 20200913, end: 20200914
  84. REMDESIVIR. [Suspect]
     Active Substance: REMDESIVIR
     Dosage: 100 MG, QD
     Route: 042
     Dates: start: 20200801
  85. VANCOMYCIN [Concomitant]
     Active Substance: VANCOMYCIN
     Dosage: 1 G
     Dates: start: 20200813, end: 20200813
  86. VANCOMYCIN [Concomitant]
     Active Substance: VANCOMYCIN
     Dosage: 1 G
     Dates: start: 20200815, end: 20200815
  87. AZITHROMYCIN ANHYDROUS. [Concomitant]
     Active Substance: AZITHROMYCIN ANHYDROUS
     Indication: COVID-19 PNEUMONIA
  88. ENOXAPARIN [Concomitant]
     Active Substance: ENOXAPARIN
     Dosage: ONGOING
     Route: 065
     Dates: start: 20200730, end: 20200823
  89. ENOXAPARIN [Concomitant]
     Active Substance: ENOXAPARIN
     Dosage: 60 MG
     Route: 065
     Dates: start: 20200801, end: 20200803
  90. LEVOTHYROXINE. [Concomitant]
     Active Substance: LEVOTHYROXINE
     Dosage: 100 UG
     Route: 065
     Dates: start: 20200802, end: 20200911
  91. EPINEPHRINE. [Concomitant]
     Active Substance: EPINEPHRINE
     Indication: INTENSIVE CARE
     Dosage: ONGOING
     Dates: start: 20200804
  92. CEFTRIAXONE. [Concomitant]
     Active Substance: CEFTRIAXONE
     Indication: COVID-19 PNEUMONIA
     Dates: start: 20200727, end: 20200727
  93. CEFTRIAXONE. [Concomitant]
     Active Substance: CEFTRIAXONE
     Indication: COVID-19 PNEUMONIA
     Dosage: ONGOING
     Dates: start: 20200728, end: 20200803
  94. PROPOFOL. [Concomitant]
     Active Substance: PROPOFOL
     Dosage: 50 ML
     Route: 065
     Dates: start: 20200826, end: 20200828
  95. FENTANYL. [Concomitant]
     Active Substance: FENTANYL
     Dosage: 50 UG
     Route: 065
     Dates: start: 20200803, end: 20200803
  96. ISOPHANE INSULIN [Concomitant]
     Active Substance: INSULIN NOS
  97. HEPARIN [Concomitant]
     Active Substance: HEPARIN SODIUM
     Indication: COVID-19
     Route: 065
     Dates: start: 20200905, end: 20200905
  98. DIAZEPAN [Concomitant]
     Active Substance: DIAZEPAM
     Indication: SEDATION
     Dates: start: 20200904, end: 20200905
  99. LEVOFLOXACIN. [Concomitant]
     Active Substance: LEVOFLOXACIN
     Dates: start: 20200811, end: 20200811
  100. CONCENTRATED RED CELLS [Concomitant]
     Active Substance: HUMAN RED BLOOD CELL
     Dosage: 2 U
     Dates: start: 20200829, end: 20200829
  101. MEROPENEM. [Concomitant]
     Active Substance: MEROPENEM
     Dosage: 1 G
     Dates: start: 20200828, end: 20200901
  102. ENOXAPARIN [Concomitant]
     Active Substance: ENOXAPARIN
     Indication: COVID-19
     Dosage: ONGOING
     Route: 065
     Dates: start: 20200727, end: 20200727
  103. DEXAMETHASONE. [Concomitant]
     Active Substance: DEXAMETHASONE
     Dosage: 4 MG
     Route: 065
     Dates: start: 20200901, end: 20200901
  104. POLYMYXIN B. [Concomitant]
     Active Substance: POLYMYXIN B
     Dosage: 50 MG
     Dates: start: 20200828, end: 20200828
  105. MIDAZOLAM. [Concomitant]
     Active Substance: MIDAZOLAM
     Dosage: 250 MG
     Route: 065
     Dates: start: 20200805, end: 20200805
  106. ROCURONIUM [Concomitant]
     Active Substance: ROCURONIUM BROMIDE
     Dosage: 25 ML
     Route: 065
     Dates: start: 20200820, end: 20200820
  107. FLEET ENEMA [Concomitant]
     Active Substance: SODIUM PHOSPHATE, DIBASIC\SODIUM PHOSPHATE, MONOBASIC
     Indication: CONSTIPATION
     Dosage: 1 UNIT
     Route: 065
     Dates: start: 20200807, end: 20200807
  108. METHADONE [Concomitant]
     Active Substance: METHADONE HYDROCHLORIDE
     Indication: SEDATION
     Dates: start: 20200904, end: 20200904
  109. FUROSEMIDE. [Concomitant]
     Active Substance: FUROSEMIDE
     Indication: RENAL FAILURE
     Dates: start: 20200904, end: 20200907
  110. NORADRENALINE [NOREPINEPHRINE] [Concomitant]
     Active Substance: NOREPINEPHRINE
     Indication: SEPSIS
     Dosage: 16 ML
     Dates: start: 20200823, end: 20200829
  111. VANCOMYCIN [Concomitant]
     Active Substance: VANCOMYCIN
     Dosage: 500 MG
     Dates: start: 20200830, end: 20200830
  112. AZITHROMYCIN ANHYDROUS. [Concomitant]
     Active Substance: AZITHROMYCIN ANHYDROUS
     Indication: COVID-19 PNEUMONIA
     Dates: start: 20200726, end: 20200726
  113. OMEPRAZOLE. [Concomitant]
     Active Substance: OMEPRAZOLE
     Indication: STRESS ULCER
     Dosage: ONGOING
     Dates: start: 20200728, end: 20200913
  114. CLARITHROMYCIN. [Concomitant]
     Active Substance: CLARITHROMYCIN
     Indication: COVID-19 PNEUMONIA
     Dosage: 500 MG
     Dates: start: 20200727, end: 20200727
  115. LEVOTHYROXINE. [Concomitant]
     Active Substance: LEVOTHYROXINE
     Indication: HYPOTHYROIDISM
     Dosage: ONGOING
     Route: 065
     Dates: end: 20200731
  116. LEVOTHYROXINE. [Concomitant]
     Active Substance: LEVOTHYROXINE
     Dosage: 100 UG
     Dates: start: 20200731
  117. EPINEPHRINE. [Concomitant]
     Active Substance: EPINEPHRINE
     Indication: SEPSIS
     Dosage: 10 MG
     Route: 065
     Dates: start: 20200803, end: 20200803
  118. POLYMYXIN B. [Concomitant]
     Active Substance: POLYMYXIN B
     Dosage: 50 MG
     Dates: start: 20200910, end: 20200910
  119. CEFTAZIDIME. [Concomitant]
     Active Substance: CEFTAZIDIME
     Indication: PNEUMONIA BACTERIAL
     Dosage: 2 G
     Route: 065
     Dates: start: 20200902, end: 20200904
  120. CEFTAZIDIME. [Concomitant]
     Active Substance: CEFTAZIDIME
     Dosage: 1 G
     Route: 065
     Dates: start: 20200902, end: 20200902
  121. INSULIN [Concomitant]
     Active Substance: INSULIN NOS
     Dosage: 6 UNIT
     Dates: start: 20200805, end: 20200805
  122. POTASSIUM CHLORIDE. [Concomitant]
     Active Substance: POTASSIUM CHLORIDE
     Dates: start: 20200901, end: 20200901
  123. LEVOFLOXACIN. [Concomitant]
     Active Substance: LEVOFLOXACIN
     Dates: start: 20200813, end: 20200818
  124. CONCENTRATED RED CELLS [Concomitant]
     Active Substance: HUMAN RED BLOOD CELL
     Dosage: 2 UNIT
     Dates: start: 20200911, end: 20200911
  125. NORADRENALINE [NOREPINEPHRINE] [Concomitant]
     Active Substance: NOREPINEPHRINE
     Dosage: 32 ML
     Dates: start: 20200831, end: 20200909
  126. DIPYRONE [Concomitant]
     Active Substance: DIPYRONE
     Dates: start: 20200908, end: 20200908
  127. ADRENALINE [EPINEPHRINE] [Concomitant]
     Active Substance: EPINEPHRINE

REACTIONS (6)
  - Sepsis [Recovering/Resolving]
  - Sepsis [Not Recovered/Not Resolved]
  - Acute kidney injury [Recovering/Resolving]
  - Cerebrovascular accident [Not Recovered/Not Resolved]
  - Pulmonary sepsis [Recovered/Resolved]
  - Pneumonia bacterial [Recovering/Resolving]

NARRATIVE: CASE EVENT DATE: 20200804
